FAERS Safety Report 8363339-3 (Version None)
Quarter: 2012Q2

REPORT INFORMATION
  Report Type: 
  Country: None (occurrence: None)
  Receive Date: 20120516
  Receipt Date: 20120511
  Transmission Date: 20120825
  Serious: Yes (Congenital Anomaly)
  Sender: FDA-Public Use
  Company Number: BR-SANOFI-AVENTIS-2012SA033568

PATIENT
  Sex: Female
  Weight: 2.3 kg

DRUGS (3)
  1. PROGESTERONE [Concomitant]
     Dosage: MOTHER RECEIVED 100 MG
     Route: 064
     Dates: start: 20101229
  2. ASPIRIN [Concomitant]
     Dosage: MOTHER RECEIVED 100 MG
     Route: 064
     Dates: start: 20101229
  3. ENOXAPARIN SODIUM [Suspect]
     Route: 064
     Dates: start: 20101229

REACTIONS (3)
  - CONGENITAL MEGACOLON [None]
  - FOETAL EXPOSURE DURING PREGNANCY [None]
  - HYPERINSULINISM [None]
